FAERS Safety Report 6459117-2 (Version None)
Quarter: 2009Q4

REPORT INFORMATION
  Report Type: 
  Country: None (occurrence: None)
  Receive Date: 20091127
  Receipt Date: 20091120
  Transmission Date: 20100525
  Serious: Yes (Hospitalization)
  Sender: FDA-Public Use
  Company Number: AU-BRISTOL-MYERS SQUIBB COMPANY-13781810

PATIENT
  Age: 72 Year
  Sex: Female
  Weight: 74 kg

DRUGS (3)
  1. IRBESARTAN [Suspect]
     Indication: HYPERTENSION
     Dosage: RESTARTED ON 01-JUN-2007
     Dates: start: 20041123
  2. CLOPIDOGREL BISULFATE [Suspect]
     Indication: PROPHYLAXIS
     Dosage: RESTARTED ON 01-JUN-2007
     Dates: start: 20041123
  3. ASPIRIN [Suspect]
     Indication: PROPHYLAXIS
     Dosage: RESTARTED ON 01-JUN-2007.
     Dates: start: 20041123

REACTIONS (1)
  - GASTRIC ULCER HAEMORRHAGE [None]
